FAERS Safety Report 15999054 (Version 1)
Quarter: 2019Q1

REPORT INFORMATION
  Report Type: Spontaneous
  Country: FR (occurrence: FR)
  Receive Date: 20190225
  Receipt Date: 20190225
  Transmission Date: 20190418
  Serious: Yes (Hospitalization)
  Sender: FDA-Public Use
  Company Number: FR-ORION CORPORATION ORION PHARMA-19_00005605

PATIENT
  Age: 74 Year
  Sex: Female
  Weight: 45.6 kg

DRUGS (2)
  1. NUROFEN [Interacting]
     Active Substance: IBUPROFEN
     Indication: MIGRAINE
     Route: 048
     Dates: start: 20180205, end: 20180207
  2. IMETH [Suspect]
     Active Substance: METHOTREXATE SODIUM
     Indication: CUTANEOUS VASCULITIS
     Dosage: STRENGTH: 2.5 MG
     Route: 048
     Dates: start: 2013, end: 20180205

REACTIONS (4)
  - Drug interaction [Unknown]
  - Anaemia [Recovered/Resolved]
  - Product use in unapproved indication [Unknown]
  - Agranulocytosis [Recovered/Resolved]

NARRATIVE: CASE EVENT DATE: 20180208
